FAERS Safety Report 5122712-7 (Version None)
Quarter: 2006Q4

REPORT INFORMATION
  Report Type: 
  Country: None (occurrence: None)
  Receive Date: 20061004
  Receipt Date: 20060919
  Transmission Date: 20070319
  Serious: Yes (Other)
  Sender: FDA-Public Use
  Company Number: S06-SWI-03758-01

PATIENT
  Age: 44 Year
  Sex: Male
  Weight: 68 kg

DRUGS (2)
  1. CIPRALEX (ESCITALOPRAM) [Suspect]
     Indication: DEPRESSION
     Dosage: 10 MG QD PO
     Route: 048
     Dates: start: 20060614, end: 20060628
  2. CIPRALEX (ESCITALOPRAM) [Suspect]
     Indication: SOCIAL PHOBIA
     Dosage: 10 MG QD PO
     Route: 048
     Dates: start: 20060614, end: 20060628

REACTIONS (9)
  - AGITATION [None]
  - ANXIETY [None]
  - DIARRHOEA [None]
  - HAEMATEMESIS [None]
  - NAUSEA [None]
  - TACHYPNOEA [None]
  - TREMOR [None]
  - VISUAL DISTURBANCE [None]
  - VOMITING [None]
